FAERS Safety Report 9346061 (Version 3)
Quarter: 2013Q2

REPORT INFORMATION
  Report Type: Report from Study
  Country: DE (occurrence: DE)
  Receive Date: 20130613
  Receipt Date: 20130619
  Transmission Date: 20140414
  Serious: Yes (Death, Hospitalization, Other)
  Sender: FDA-Public Use
  Company Number: PHHY2013DE042688

PATIENT
  Age: 75 Year
  Sex: Female
  Weight: 70 kg

DRUGS (5)
  1. ICL670A [Suspect]
     Indication: MYELODYSPLASTIC SYNDROME
     Dosage: 1000 MG, PER DAY
     Route: 048
     Dates: start: 20110420
  2. ICL670A [Suspect]
     Dosage: 1500 MG, PER DAY
     Route: 048
  3. BELOC-ZOC MITE [Concomitant]
     Dosage: 95 MG, PER DAY
     Route: 048
  4. AZACITIDINE [Concomitant]
     Dosage: UNK UKN, UNK
     Dates: start: 20110124, end: 20120120
  5. MITOXANTRON [Concomitant]
     Dosage: 10 MG/M2
     Dates: start: 20120606, end: 20120606

REACTIONS (8)
  - Craniocerebral injury [Fatal]
  - Fall [Fatal]
  - Gingival bleeding [Recovered/Resolved]
  - General physical health deterioration [Recovered/Resolved]
  - Infection [Recovered/Resolved]
  - Pyrexia [Unknown]
  - Abdominal pain [Recovered/Resolved]
  - Creatinine renal clearance decreased [Recovered/Resolved]
